FAERS Safety Report 16915738 (Version 1)
Quarter: 2019Q4

REPORT INFORMATION
  Report Type: Spontaneous
  Country: GB (occurrence: GB)
  Receive Date: 20191014
  Receipt Date: 20191014
  Transmission Date: 20200122
  Serious: Yes (Disabling)
  Sender: FDA-Public Use
  Company Number: GB-MYLANLABS-2019M1096360

PATIENT
  Age: 76 Year
  Sex: Female
  Weight: 78 kg

DRUGS (14)
  1. OMEPRAZOLE. [Concomitant]
     Active Substance: OMEPRAZOLE
     Indication: HYPERCHLORHYDRIA
     Dosage: 1 DOSAGE FORM, QD
     Dates: start: 20190416
  2. DOXAZOSIN [Suspect]
     Active Substance: DOXAZOSIN MESYLATE
     Indication: PRODUCT USED FOR UNKNOWN INDICATION
     Dosage: 4 MILLIGRAM, QD
     Dates: start: 20190301
  3. HYDROXYCHLOROQUINE SULFATE. [Concomitant]
     Active Substance: HYDROXYCHLOROQUINE SULFATE
     Dosage: 2 DOSAGE FORM, QD
     Dates: start: 20190103
  4. CHLORAMPHENICOL [Concomitant]
     Active Substance: CHLORAMPHENICOL
     Dosage: 2 DOSAGE FORM, QD (APPLY TO THE AFFECTED EYE(S).)
     Route: 050
     Dates: start: 20190528
  5. MOVICOL [Concomitant]
     Active Substance: POLYETHYLENE GLYCOL 3350\POTASSIUM CHLORIDE\SODIUM BICARBONATE\SODIUM CHLORIDE
     Dosage: UNK UNK, PRN
     Dates: start: 20180629
  6. PARACETAMOL [Concomitant]
     Active Substance: ACETAMINOPHEN
     Indication: PAIN
     Dosage: 8 DOSAGE FORM, QD (MAXIMUM 8.)
     Dates: start: 20100603
  7. HYPROMELLOSE [Concomitant]
     Active Substance: HYPROMELLOSES
     Dosage: 1 GTT DROPS, PRN
     Dates: start: 20190103
  8. SIMVASTATIN. [Concomitant]
     Active Substance: SIMVASTATIN
     Dosage: 1 DOSAGE FORM, QD (AT NIGHT.)
     Dates: start: 20181017
  9. MEBEVERINE HYDROCHLORIDE [Concomitant]
     Active Substance: MEBEVERINE HYDROCHLORIDE
     Dosage: 2 DOSAGE FORM, QD
     Dates: start: 20181017
  10. LEVOTHYROXINE. [Concomitant]
     Active Substance: LEVOTHYROXINE
     Dosage: 1 DOSAGE FORM, QD (EACH MORNING.)
     Dates: start: 20181017
  11. CETIRIZINE [Concomitant]
     Active Substance: CETIRIZINE HYDROCHLORIDE
     Dosage: 1 DOSAGE FORM, QD
     Dates: start: 20181017
  12. ZEMTARD [Concomitant]
     Dosage: 1 DOSAGE FORM, QD
     Dates: start: 20181017
  13. LISINOPRIL. [Concomitant]
     Active Substance: LISINOPRIL
     Dosage: 4 DOSAGE FORM, QD
     Dates: start: 20181017
  14. GLANDOSANE                         /01287301/ [Concomitant]
     Indication: DRY MOUTH
     Dosage: UNK, PRN
     Dates: start: 20181017

REACTIONS (2)
  - Malaise [Unknown]
  - Diarrhoea [Recovered/Resolved]
